FAERS Safety Report 7265976-6 (Version None)
Quarter: 2011Q1

REPORT INFORMATION
  Report Type: 
  Country: None (occurrence: None)
  Receive Date: 20110131
  Receipt Date: 20110121
  Transmission Date: 20110831
  Serious: Yes (Other)
  Sender: FDA-Public Use
  Company Number: JP-NOVOPROD-322054

PATIENT
  Sex: Male

DRUGS (5)
  1. URSO                               /00465701/ [Concomitant]
     Dosage: 600 MG, QD
     Route: 048
  2. SEIBULE [Concomitant]
     Dosage: 50 MG, QD
     Route: 048
  3. VICTOZA [Suspect]
     Indication: DIABETES MELLITUS
     Dosage: 0.9 MG, QD
     Route: 058
     Dates: start: 20101008
  4. MELBIN                             /00082702/ [Concomitant]
     Dosage: 1000 MG, QD
     Route: 048
  5. ACTOS [Concomitant]
     Dosage: 3 MG, QD
     Route: 048

REACTIONS (2)
  - CONDITION AGGRAVATED [None]
  - PANCREATITIS CHRONIC [None]
